FAERS Safety Report 24085915 (Version 1)
Quarter: 2024Q3

REPORT INFORMATION
  Report Type: Spontaneous
  Country: US (occurrence: None)
  Receive Date: 20240712
  Receipt Date: 20240712
  Transmission Date: 20241017
  Serious: Yes (Other)
  Sender: Public
  Company Number: None

PATIENT
  Age: 73 Year
  Sex: Female
  Weight: 58.05 kg

DRUGS (18)
  1. ALENDRONATE SODIUM [Suspect]
     Active Substance: ALENDRONATE SODIUM
     Indication: Osteoporosis
     Dosage: 1 TABLET WEEKLY
     Route: 048
     Dates: start: 20240619, end: 20240627
  2. HERBALS\WITHANIA SOMNIFERA ROOT [Concomitant]
     Active Substance: HERBALS\WITHANIA SOMNIFERA ROOT
  3. TULSI TEA [Concomitant]
  4. CALCIUM [Concomitant]
     Active Substance: CALCIUM
  5. ALMOND MILK [Concomitant]
  6. VITAMIN C [Concomitant]
     Active Substance: ASCORBIC ACID
  7. VITAMIN D3 [Concomitant]
     Active Substance: CHOLECALCIFEROL
  8. VIT E [Concomitant]
  9. MVI SILVER [Concomitant]
  10. ZINC PERCOLATE [Concomitant]
  11. FISH OIL [Concomitant]
  12. PEPCID AC [Concomitant]
     Active Substance: FAMOTIDINE
  13. CLARITIN [Concomitant]
     Active Substance: LORATADINE
  14. COENZYME Q10 [Concomitant]
     Active Substance: DIETARY SUPPLEMENT\UBIDECARENONE
  15. MAGNESIUM THEONATE [Concomitant]
  16. WALNUTS [Concomitant]
  17. PUMPKIN SEED [Concomitant]
     Active Substance: PUMPKIN SEED
  18. BKYE BERRUES [Concomitant]

REACTIONS (4)
  - Fatigue [None]
  - Malaise [None]
  - Nail disorder [None]
  - Alopecia [None]

NARRATIVE: CASE EVENT DATE: 20240619
